FAERS Safety Report 21189348 (Version 1)
Quarter: 2022Q3

REPORT INFORMATION
  Report Type: Spontaneous
  Country: US (occurrence: None)
  Receive Date: 20220809
  Receipt Date: 20220809
  Transmission Date: 20221027
  Serious: Yes (Other)
  Sender: FDA-Public Use
  Company Number: US-ROCHE-3117660

PATIENT
  Sex: Female

DRUGS (2)
  1. OCREVUS [Suspect]
     Active Substance: OCRELIZUMAB
     Indication: Product used for unknown indication
     Dosage: 2 WEEKS BEFORE 12-JUN- 2022?INFUSE 600 MG EVERY 6 MONTHS SUBSEQUENTLY
     Route: 042
     Dates: start: 20220612
  2. TECFIDERA [Suspect]
     Active Substance: DIMETHYL FUMARATE
     Indication: Product used for unknown indication
     Route: 065

REACTIONS (3)
  - Lymphocyte count decreased [Unknown]
  - Eye infection [Unknown]
  - Fatigue [Unknown]
